FAERS Safety Report 7349409-7 (Version None)
Quarter: 2011Q1

REPORT INFORMATION
  Report Type: 
  Country: None (occurrence: None)
  Receive Date: 20110314
  Receipt Date: 20110216
  Transmission Date: 20110831
  Serious: Yes (Other)
  Sender: FDA-Public Use
  Company Number: CA-SANOFI-AVENTIS-2011SA010595

PATIENT

DRUGS (2)
  1. LANTUS [Suspect]
  2. SOLOSTAR [Suspect]

REACTIONS (1)
  - DEVICE MALFUNCTION [None]
